FAERS Safety Report 11719318 (Version 2)
Quarter: 2015Q4

REPORT INFORMATION
  Report Type: Report from Study
  Country: JP (occurrence: JP)
  Receive Date: 20151110
  Receipt Date: 20151229
  Transmission Date: 20160304
  Serious: Yes (Death, Other)
  Sender: FDA-Public Use
  Company Number: JP-VIFOR (INTERNATIONAL) INC.-VIT-2015-03064

PATIENT
  Age: 69 Year
  Sex: Male

DRUGS (12)
  1. FAMOTIDINE. [Concomitant]
     Active Substance: FAMOTIDINE
     Route: 048
  2. MIRCERA [Suspect]
     Active Substance: METHOXY POLYETHYLENE GLYCOL-EPOETIN BETA
     Indication: NEPHROGENIC ANAEMIA
     Route: 058
     Dates: start: 20130807, end: 20140122
  3. EXCEGRAN [Concomitant]
     Active Substance: ZONISAMIDE
     Route: 048
  4. DIOVAN [Concomitant]
     Active Substance: VALSARTAN
     Route: 048
  5. EQUA [Concomitant]
     Active Substance: VILDAGLIPTIN
     Route: 048
  6. CARDENALIN [Concomitant]
     Active Substance: DOXAZOSIN MESYLATE
     Route: 048
  7. RENIVACE [Concomitant]
     Active Substance: ENALAPRIL
     Route: 048
  8. URSO [Concomitant]
     Active Substance: URSODIOL
     Route: 048
  9. ATELEC [Concomitant]
     Active Substance: CILNIDIPINE
     Route: 048
  10. MIRCERA [Suspect]
     Active Substance: METHOXY POLYETHYLENE GLYCOL-EPOETIN BETA
     Indication: NEPHROGENIC ANAEMIA
     Route: 058
     Dates: start: 20140305, end: 20150701
  11. FLUITRAN [Concomitant]
     Active Substance: TRICHLORMETHIAZIDE
     Route: 048
  12. ALFAROL [Concomitant]
     Active Substance: ALFACALCIDOL
     Route: 048

REACTIONS (6)
  - Hyperkalaemia [Fatal]
  - Arteriosclerosis coronary artery [Unknown]
  - Fall [Unknown]
  - Hypertension [Unknown]
  - Cardio-respiratory arrest [Fatal]
  - Platelet count decreased [Unknown]

NARRATIVE: CASE EVENT DATE: 201507
